FAERS Safety Report 4273274-8 (Version None)
Quarter: 2004Q1

REPORT INFORMATION
  Report Type: 
  Country: None (occurrence: None)
  Receive Date: 20040116
  Receipt Date: 20040105
  Transmission Date: 20041129
  Serious: Yes (Hospitalization)
  Sender: FDA-Public Use
  Company Number: WAES 0401ISR00008

PATIENT
  Age: 52 Year
  Sex: Male

DRUGS (8)
  1. BLEOMYCIN [Concomitant]
     Indication: HODGKIN'S DISEASE
  2. DACARBAZINE [Concomitant]
     Indication: HODGKIN'S DISEASE
  3. DOXORUBICIN [Concomitant]
     Indication: HODGKIN'S DISEASE
  4. MUSTARGEN [Suspect]
     Indication: HODGKIN'S DISEASE
  5. PREDNISONE [Concomitant]
     Indication: HODGKIN'S DISEASE
  6. PROCARBAZINE [Concomitant]
     Indication: HODGKIN'S DISEASE
  7. VINBLASTINE SULFATE [Concomitant]
     Indication: HODGKIN'S DISEASE
  8. VINCRISTINE SULFATE [Concomitant]
     Indication: HODGKIN'S DISEASE

REACTIONS (5)
  - ANAEMIA [None]
  - FEBRILE NEUTROPENIA [None]
  - LYMPHADENOPATHY [None]
  - PNEUMONIA [None]
  - PYREXIA [None]
